FAERS Safety Report 23541211 (Version 1)
Quarter: 2024Q1

REPORT INFORMATION
  Report Type: Spontaneous
  Country: US (occurrence: US)
  Receive Date: 20240219
  Receipt Date: 20240219
  Transmission Date: 20240410
  Serious: Yes (Hospitalization)
  Sender: FDA-Public Use
  Company Number: US-ELI_LILLY_AND_COMPANY-US202402004812

PATIENT
  Age: 59 Year
  Sex: Female

DRUGS (1)
  1. TALTZ [Suspect]
     Active Substance: IXEKIZUMAB
     Indication: Psoriasis
     Dosage: UNK UNK, UNKNOWN
     Route: 065

REACTIONS (10)
  - Craniofacial fracture [Unknown]
  - Spinal column injury [Unknown]
  - Humerus fracture [Unknown]
  - Liver injury [Unknown]
  - Splenic injury [Unknown]
  - Rib fracture [Unknown]
  - Sternal fracture [Unknown]
  - Pneumothorax [Unknown]
  - Contusion [Unknown]
  - Skin injury [Unknown]

NARRATIVE: CASE EVENT DATE: 20230109
